FAERS Safety Report 5977356-1 (Version None)
Quarter: 2008Q4

REPORT INFORMATION
  Report Type: 
  Country: None (occurrence: None)
  Receive Date: 20081201
  Receipt Date: 20081201
  Transmission Date: 20090506
  Serious: Yes (Other)
  Sender: FDA-Public Use
  Company Number: None

PATIENT
  Age: 48 Year
  Sex: Female
  Weight: 72.5755 kg

DRUGS (1)
  1. HUMALOG MIX 50/50 [Suspect]
     Indication: TYPE 1 DIABETES MELLITUS
     Dosage: ONLY USED TWICE IN PERIOD  VARIABLE TWICE DAILY SQ
     Route: 058
     Dates: start: 20081016, end: 20081127

REACTIONS (2)
  - BONE PAIN [None]
  - MYALGIA [None]
